FAERS Safety Report 9547406 (Version 1)
Quarter: 2013Q2

REPORT INFORMATION
  Report Type: Spontaneous
  Country: US (occurrence: None)
  Receive Date: 20130606
  Receipt Date: 20130606
  Transmission Date: 20140414
  Serious: No
  Sender: FDA-Public Use
  Company Number: 163-POMAL-13044986

PATIENT
  Age: 60 Year
  Sex: Female

DRUGS (1)
  1. POMALYST (POMALIDOMIDE) [Suspect]
     Indication: PLASMA CELL MYELOMA
     Route: 048
     Dates: start: 20130406, end: 20130426

REACTIONS (1)
  - Rash erythematous [None]
